FAERS Safety Report 22248925 (Version 1)
Quarter: 2023Q2

REPORT INFORMATION
  Report Type: Spontaneous
  Country: DE (occurrence: DE)
  Receive Date: 20230425
  Receipt Date: 20230425
  Transmission Date: 20230722
  Serious: No
  Sender: FDA-Public Use
  Company Number: DE-ALKEM LABORATORIES LIMITED-DE-ALKEM-2023-01065

PATIENT
  Age: 34 Year
  Sex: Female
  Weight: 130 kg

DRUGS (5)
  1. FINGOLIMOD [Suspect]
     Active Substance: FINGOLIMOD
     Indication: Relapsing-remitting multiple sclerosis
     Dosage: 0.56 MILLIGRAM, TABLET
     Route: 048
     Dates: start: 20221219, end: 20230102
  2. MIRABEGRON [Concomitant]
     Active Substance: MIRABEGRON
     Indication: Bladder dysfunction
     Dosage: 50 MILLIGRAM, QD
     Route: 048
     Dates: start: 2019
  3. FERROUS GLYCINE SULFATE [Concomitant]
     Active Substance: FERROUS GLYCINE SULFATE
     Indication: Iron deficiency anaemia
     Dosage: 50 MILLIGRAM
     Route: 048
  4. LEVOTHYROXINE [Concomitant]
     Active Substance: LEVOTHYROXINE
     Indication: Hypothyroidism
     Dosage: 75 MICROGRAM, QD
     Route: 048
  5. RAMIPRIL [Concomitant]
     Active Substance: RAMIPRIL
     Indication: Hypertension
     Dosage: 2.5 MILLIGRAM, BID, EVERY 0.5 DAY
     Route: 048

REACTIONS (1)
  - Lymphocyte count decreased [Not Recovered/Not Resolved]

NARRATIVE: CASE EVENT DATE: 20230102
